FAERS Safety Report 26112608 (Version 1)
Quarter: 2025Q4

REPORT INFORMATION
  Report Type: Spontaneous
  Country: US (occurrence: US)
  Receive Date: 20251202
  Receipt Date: 20251202
  Transmission Date: 20260118
  Serious: Yes (Other)
  Sender: BRACCO
  Company Number: US-BRACCO-2025US08305

PATIENT
  Age: 76 Year
  Sex: Male
  Weight: 111.9 kg

DRUGS (3)
  1. LUMASON [Suspect]
     Active Substance: SULFUR HEXAFLUORIDE
     Indication: Echocardiogram
     Dosage: 2 ML, SINGLE
     Dates: start: 20251122, end: 20251122
  2. LUMASON [Suspect]
     Active Substance: SULFUR HEXAFLUORIDE
  3. LUMASON [Suspect]
     Active Substance: SULFUR HEXAFLUORIDE

REACTIONS (1)
  - Hypersensitivity [Recovered/Resolved]

NARRATIVE: CASE EVENT DATE: 20251122
